FAERS Safety Report 20651023 (Version 2)
Quarter: 2022Q2

REPORT INFORMATION
  Report Type: Spontaneous
  Country: TR (occurrence: TR)
  Receive Date: 20220329
  Receipt Date: 20220405
  Transmission Date: 20220721
  Serious: Yes (Disabling, Other)
  Sender: FDA-Public Use
  Company Number: TR-RECORDATI-2022001130

PATIENT

DRUGS (4)
  1. PITAVASTATIN [Suspect]
     Active Substance: PITAVASTATIN
     Indication: Hypercholesterolaemia
     Dosage: 1 DOSAGE FORM, QD
     Route: 048
     Dates: start: 20200918
  2. PAROXETINE HYDROCHLORIDE [Concomitant]
     Active Substance: PAROXETINE HYDROCHLORIDE
     Indication: Panic attack
     Dosage: UNK
     Dates: start: 20220103
  3. PLAVIX [Concomitant]
     Active Substance: CLOPIDOGREL BISULFATE
     Indication: Product used for unknown indication
     Dosage: UNK
  4. ASPIRIN [Concomitant]
     Active Substance: ASPIRIN
     Indication: Product used for unknown indication
     Dosage: UNK

REACTIONS (1)
  - Vision blurred [Recovered/Resolved with Sequelae]

NARRATIVE: CASE EVENT DATE: 20200918
